FAERS Safety Report 7407581-4 (Version None)
Quarter: 2011Q2

REPORT INFORMATION
  Report Type: 
  Country: None (occurrence: None)
  Receive Date: 20110405
  Receipt Date: 20110324
  Transmission Date: 20111010
  Serious: Yes (Other)
  Sender: FDA-Public Use
  Company Number: US-1185556

PATIENT
  Sex: Male

DRUGS (1)
  1. TOBRADEX [Suspect]
     Indication: EYE INJURY
     Dosage: OPHTHALMIC
     Route: 047

REACTIONS (3)
  - INTRAOCULAR PRESSURE INCREASED [None]
  - VISUAL ACUITY REDUCED [None]
  - LENTICULAR OPACITIES [None]
